FAERS Safety Report 9870345 (Version 1)
Quarter: 2014Q1

REPORT INFORMATION
  Report Type: Spontaneous
  Country: US (occurrence: None)
  Receive Date: 20140204
  Receipt Date: 20140204
  Transmission Date: 20141002
  Serious: No
  Sender: FDA-Public Use
  Company Number: None

PATIENT
  Age: 46 Year
  Sex: Female
  Weight: 52.62 kg

DRUGS (1)
  1. LIOTHYRONINE [Suspect]
     Indication: TRI-IODOTHYRONINE FREE DECREASED
     Route: 048
     Dates: start: 20140115, end: 20140128

REACTIONS (6)
  - Dyspnoea [None]
  - Heart rate increased [None]
  - Anxiety [None]
  - Panic attack [None]
  - Irritability [None]
  - Myocardial infarction [None]
